FAERS Safety Report 7321441-9 (Version None)
Quarter: 2011Q1

REPORT INFORMATION
  Report Type: 
  Country: None (occurrence: None)
  Receive Date: 20110228
  Receipt Date: 20100615
  Transmission Date: 20110831
  Serious: No
  Sender: FDA-Public Use
  Company Number: US-PFIZER INC-2010075599

PATIENT
  Sex: Female

DRUGS (5)
  1. PRISTIQ [Concomitant]
     Indication: MENTAL DISORDER
     Dosage: 50 MG, DAILY
     Route: 048
  2. ALPRAZOLAM [Concomitant]
     Indication: MENTAL DISORDER
     Dosage: 2 MG, AS NEEDED
     Route: 048
  3. GEODON [Suspect]
     Indication: BIPOLAR DISORDER
     Dosage: 40 MG, 2X/DAY
     Route: 048
     Dates: start: 20100601
  4. TOPAMAX [Concomitant]
     Indication: MENTAL DISORDER
     Dosage: 25 MG, 3X/DAY
     Route: 048
  5. ADDERALL XR 10 [Concomitant]
     Indication: MENTAL DISORDER
     Dosage: 15 MG, DAILY
     Route: 048

REACTIONS (1)
  - OEDEMA PERIPHERAL [None]
